FAERS Safety Report 9817881 (Version 1)
Quarter: 2014Q1

REPORT INFORMATION
  Report Type: Spontaneous
  Country: US (occurrence: None)
  Receive Date: 20140110
  Receipt Date: 20140110
  Transmission Date: 20141002
  Serious: Yes (Other)
  Sender: FDA-Public Use
  Company Number: None

PATIENT
  Age: 27 Year
  Sex: Female

DRUGS (2)
  1. BOSULIF [Suspect]
     Dosage: 6 TABS
     Dates: start: 20131121
  2. ICLUSIG [Concomitant]

REACTIONS (2)
  - Pulmonary hypertension [None]
  - Cardiomegaly [None]
